FAERS Safety Report 6994246-6 (Version None)
Quarter: 2010Q3

REPORT INFORMATION
  Report Type: 
  Country: None (occurrence: None)
  Receive Date: 20100917
  Receipt Date: 20070629
  Transmission Date: 20110219
  Serious: Yes (Life-Threatening, Hospitalization)
  Sender: FDA-Public Use
  Company Number: US-ASTRAZENECA-2006UW07949

PATIENT
  Age: 12922 Day
  Sex: Female
  Weight: 53.1 kg

DRUGS (13)
  1. SEROQUEL [Suspect]
     Indication: DEPRESSION
     Dosage: 200MG, TWO TABLETS, AT NIGHT
     Route: 048
     Dates: start: 20030922, end: 20040102
  2. SEROQUEL [Suspect]
     Indication: SLEEP DISORDER
     Dosage: 200MG, TWO TABLETS, AT NIGHT
     Route: 048
     Dates: start: 20030922, end: 20040102
  3. SEROQUEL [Suspect]
     Dosage: 200MG, 1-4 TABLETS, AT BEDTIME
     Route: 048
     Dates: start: 20040316
  4. SEROQUEL [Suspect]
     Dosage: 200MG, 1-4 TABLETS, AT BEDTIME
     Route: 048
     Dates: start: 20040316
  5. SEROQUEL [Suspect]
     Route: 048
  6. SEROQUEL [Suspect]
     Route: 048
  7. RELACORE [Concomitant]
     Indication: WEIGHT CONTROL
     Dates: start: 20041101
  8. DEXATRIM [Concomitant]
     Indication: WEIGHT CONTROL
     Dates: start: 20041101
  9. PAXIL [Concomitant]
  10. PROZAC [Concomitant]
  11. AMITRIPTYLINE HCL [Concomitant]
     Route: 048
     Dates: start: 20020515
  12. PREDNISONE [Concomitant]
     Dosage: 40-80MG
     Route: 048
     Dates: start: 20000817
  13. PAROXETINE HCL [Concomitant]
     Dosage: 20-40MG
     Route: 048
     Dates: start: 20010615

REACTIONS (6)
  - ANAPHYLACTIC REACTION [None]
  - DIABETES MELLITUS [None]
  - GLUCOSE TOLERANCE IMPAIRED [None]
  - HYPOGLYCAEMIA [None]
  - OVERDOSE [None]
  - WEIGHT INCREASED [None]
